FAERS Safety Report 6711036-X (Version None)
Quarter: 2010Q2

REPORT INFORMATION
  Report Type: 
  Country: None (occurrence: None)
  Receive Date: 20100505
  Receipt Date: 20100423
  Transmission Date: 20101027
  Serious: Yes (Hospitalization, Other)
  Sender: FDA-Public Use
  Company Number: US-JNJFOC-20100103566

PATIENT
  Sex: Female
  Weight: 69.4 kg

DRUGS (6)
  1. DURAGESIC-100 [Suspect]
     Indication: SPINAL OSTEOARTHRITIS
     Dosage: 2 OF 100 UG/HR PATCH
     Route: 062
  2. DURAGESIC-100 [Suspect]
     Indication: BACK PAIN
     Route: 062
  3. DURAGESIC-100 [Suspect]
     Route: 062
  4. DURAGESIC-100 [Suspect]
     Route: 062
  5. DURAGESIC-100 [Suspect]
     Route: 062
  6. NORCO [Concomitant]
     Indication: PAIN
     Dosage: 325/5
     Route: 048

REACTIONS (9)
  - ABDOMINAL DISCOMFORT [None]
  - BLOOD CHOLESTEROL INCREASED [None]
  - DRUG ADMINISTERED AT INAPPROPRIATE SITE [None]
  - DRUG INEFFECTIVE [None]
  - INSOMNIA [None]
  - OSTEOARTHRITIS [None]
  - PAIN IN EXTREMITY [None]
  - RASH [None]
  - WITHDRAWAL SYNDROME [None]
